FAERS Safety Report 9450248 (Version 1)
Quarter: 2013Q3

REPORT INFORMATION
  Report Type: Spontaneous
  Country: IN (occurrence: IN)
  Receive Date: 20130809
  Receipt Date: 20130809
  Transmission Date: 20140515
  Serious: Yes (Death)
  Sender: FDA-Public Use
  Company Number: IN-PFIZER INC-2012060249

PATIENT
  Age: 60 Year
  Sex: Male

DRUGS (2)
  1. SUTENT [Suspect]
     Indication: METASTATIC RENAL CELL CARCINOMA
     Dosage: 50 MG, 1X/DAY
     Route: 048
     Dates: start: 20120217
  2. SUTENT [Suspect]
     Dosage: 37.5 MG, 1X/DAY
     Route: 048
     Dates: start: 20120625

REACTIONS (12)
  - Dyspnoea [Fatal]
  - Dysgeusia [Unknown]
  - Asthenia [Not Recovered/Not Resolved]
  - Mouth ulceration [Unknown]
  - Cough [Unknown]
  - Skin exfoliation [Not Recovered/Not Resolved]
  - Erythema [Not Recovered/Not Resolved]
  - Rash [Not Recovered/Not Resolved]
  - Furuncle [Not Recovered/Not Resolved]
  - Tongue dry [Not Recovered/Not Resolved]
  - Sensation of heaviness [Not Recovered/Not Resolved]
  - Furuncle [Not Recovered/Not Resolved]
